FAERS Safety Report 7124417-X (Version None)
Quarter: 2010Q4

REPORT INFORMATION
  Report Type: 
  Country: None (occurrence: None)
  Receive Date: 20101126
  Receipt Date: 20101123
  Transmission Date: 20110411
  Serious: Yes (Life-Threatening, Hospitalization)
  Sender: FDA-Public Use
  Company Number: GXKR2009DE03086

PATIENT
  Age: 77 Year
  Sex: Female

DRUGS (6)
  1. ASPIRIN [Suspect]
     Dosage: 100 MG, QD
     Route: 048
     Dates: end: 20080703
  2. FALITHROM (NGX) [Interacting]
     Route: 048
  3. VERAPAMIL [Interacting]
     Indication: HYPERTENSION
     Dosage: 60 MG, BID
     Route: 048
  4. ARELIX ^AVENTIS PHARMA^ [Concomitant]
     Route: 048
  5. DIGITOXIN [Concomitant]
     Route: 048
  6. LISINOPRIL [Concomitant]
     Route: 048

REACTIONS (2)
  - GASTRIC ULCER HELICOBACTER [None]
  - GASTROINTESTINAL HAEMORRHAGE [None]
